FAERS Safety Report 25504365 (Version 1)
Quarter: 2025Q3

REPORT INFORMATION
  Report Type: Report from Study
  Country: CA (occurrence: CA)
  Receive Date: 20250702
  Receipt Date: 20250702
  Transmission Date: 20251020
  Serious: Yes (Death)
  Sender: PFIZER
  Company Number: CA-PFIZER INC-202500131746

PATIENT
  Age: 75 Year
  Sex: Male

DRUGS (12)
  1. RITUXIMAB [Suspect]
     Active Substance: RITUXIMAB
     Indication: Vasculitis
     Route: 042
  2. RITUXIMAB [Suspect]
     Active Substance: RITUXIMAB
     Indication: Granulomatosis with polyangiitis
     Route: 042
  3. ACETAMINOPHEN [Concomitant]
     Active Substance: ACETAMINOPHEN
     Route: 048
  4. ALENDRONATE SODIUM [Concomitant]
     Active Substance: ALENDRONATE SODIUM
  5. ALLOPURINOL [Concomitant]
     Active Substance: ALLOPURINOL
  6. ATENOLOL [Concomitant]
     Active Substance: ATENOLOL
  7. AZATHIOPRINE [Concomitant]
     Active Substance: AZATHIOPRINE
  8. DIPHENHYDRAMINE [Concomitant]
     Active Substance: DIPHENHYDRAMINE
  9. LYRICA [Concomitant]
     Active Substance: PREGABALIN
  10. METHYLPREDNISOLONE [Concomitant]
     Active Substance: METHYLPREDNISOLONE
     Route: 042
  11. METOPROLOL [Concomitant]
     Active Substance: METOPROLOL
  12. PREDNISONE [Concomitant]
     Active Substance: PREDNISONE

REACTIONS (1)
  - Illness [Fatal]
